FAERS Safety Report 6768290-8 (Version None)
Quarter: 2010Q2

REPORT INFORMATION
  Report Type: 
  Country: None (occurrence: None)
  Receive Date: 20100614
  Receipt Date: 20100610
  Transmission Date: 20101027
  Serious: Yes (Hospitalization)
  Sender: FDA-Public Use
  Company Number: US-GILEAD-2010-0029734

PATIENT
  Sex: Female
  Weight: 43.584 kg

DRUGS (12)
  1. LETAIRIS [Suspect]
     Indication: PULMONARY ARTERIAL HYPERTENSION
     Route: 048
     Dates: start: 20081230
  2. REVATIO [Concomitant]
  3. CYCLOBENZAPR [Concomitant]
  4. TRAMADOL HCL [Concomitant]
  5. PREDNISONE [Concomitant]
  6. PREVACID [Concomitant]
  7. PREMPRO [Concomitant]
  8. SANCTURA [Concomitant]
  9. VESICARE [Concomitant]
  10. HYDORCODONE/IBU [Concomitant]
  11. CALCIUM-D [Concomitant]
  12. POTASSIUM [Concomitant]

REACTIONS (1)
  - PNEUMONIA [None]
